FAERS Safety Report 6085936-0 (Version None)
Quarter: 2009Q1

REPORT INFORMATION
  Report Type: 
  Country: None (occurrence: None)
  Receive Date: 20090220
  Receipt Date: 20090213
  Transmission Date: 20090719
  Serious: Yes (Other)
  Sender: FDA-Public Use
  Company Number: GB-ALLERGAN-0811110US

PATIENT
  Sex: Male
  Weight: 76.19 kg

DRUGS (3)
  1. EXOCIN [Suspect]
     Indication: EYE OPERATION COMPLICATION
     Dosage: 1 GTT, QD
     Route: 047
     Dates: start: 20080907, end: 20080916
  2. EXOCIN [Suspect]
     Indication: CONJUNCTIVAL BLEB
  3. TRYPTOPHAN, L- [Concomitant]
     Indication: DEPRESSION
     Dosage: 1.5 G, UNK
     Route: 048
     Dates: start: 19980101

REACTIONS (3)
  - DIARRHOEA [None]
  - MALABSORPTION [None]
  - STEATORRHOEA [None]
